FAERS Safety Report 17136821 (Version 2)
Quarter: 2019Q4

REPORT INFORMATION
  Report Type: Spontaneous
  Country: US (occurrence: US)
  Receive Date: 20191210
  Receipt Date: 20191224
  Transmission Date: 20200122
  Serious: Yes (Hospitalization)
  Sender: FDA-Public Use
  Company Number: US-ACTELION-A-US2019-199133

PATIENT
  Sex: Male
  Weight: 123.36 kg

DRUGS (3)
  1. OPSUMIT [Suspect]
     Active Substance: MACITENTAN
     Indication: PULMONARY ARTERIAL HYPERTENSION
     Dosage: 10 MG, QD
     Route: 048
  2. WARFARIN [Concomitant]
     Active Substance: WARFARIN
  3. DILTIAZEM. [Concomitant]
     Active Substance: DILTIAZEM

REACTIONS (12)
  - Pleural effusion [Unknown]
  - Confusional state [Unknown]
  - Diabetes mellitus [Unknown]
  - Cyanosis [Unknown]
  - Asthenia [Unknown]
  - Mental disorder [Recovering/Resolving]
  - Hallucination [Unknown]
  - Oxygen saturation decreased [Unknown]
  - Dehydration [Unknown]
  - Gait inability [Unknown]
  - Blood potassium decreased [Unknown]
  - Parkinson^s disease [Unknown]
